FAERS Safety Report 10048162 (Version 1)
Quarter: 2014Q1

REPORT INFORMATION
  Report Type: Spontaneous
  Country: US (occurrence: US)
  Receive Date: 20140331
  Receipt Date: 20140331
  Transmission Date: 20141002
  Serious: No
  Sender: FDA-Public Use
  Company Number: US-PFIZER INC-2014088595

PATIENT
  Age: 44 Year
  Sex: Male
  Weight: 77.1 kg

DRUGS (9)
  1. NAPROXEN [Concomitant]
     Indication: PAIN IN EXTREMITY
  2. NAPROXEN [Concomitant]
     Indication: THORACIC OUTLET SYNDROME
  3. TRAMADOL [Concomitant]
     Indication: NECK PAIN
     Dosage: 150 MG, 3X/DAY
  4. TRAMADOL [Concomitant]
     Indication: PAIN IN EXTREMITY
  5. TRAMADOL [Concomitant]
     Indication: THORACIC OUTLET SYNDROME
  6. LYRICA [Suspect]
     Indication: NECK PAIN
     Dosage: 100 MG, 3X/DAY
     Dates: start: 2010
  7. LYRICA [Suspect]
     Indication: PAIN IN EXTREMITY
  8. LYRICA [Suspect]
     Indication: THORACIC OUTLET SYNDROME
  9. NAPROXEN [Concomitant]
     Indication: NECK PAIN
     Dosage: 500 MG, 2X/DAY

REACTIONS (1)
  - Drug withdrawal syndrome [Recovered/Resolved]
